FAERS Safety Report 4630058-6 (Version None)
Quarter: 2005Q2

REPORT INFORMATION
  Report Type: 
  Country: None (occurrence: None)
  Receive Date: 20050408
  Receipt Date: 20050328
  Transmission Date: 20051028
  Serious: Yes (Hospitalization)
  Sender: FDA-Public Use
  Company Number: DE-ABBOTT-05P-062-0295895-00

PATIENT
  Sex: Male
  Weight: 100 kg

DRUGS (3)
  1. AKINETON [Suspect]
     Indication: SUICIDE ATTEMPT
     Dosage: FOUR 2 MG TABLETS ONCE
     Route: 048
     Dates: start: 20050327, end: 20050327
  2. CITALOPRAM HYDROBROMIDE [Suspect]
     Indication: SUICIDE ATTEMPT
     Dosage: TEN 30 MG TABLETS ONCE
     Dates: start: 20050327, end: 20050327
  3. QUETIAPINE [Suspect]
     Indication: SUICIDE ATTEMPT
     Dosage: TEN 300 MG TABLETS ONCE
     Route: 048
     Dates: start: 20050327, end: 20050327

REACTIONS (3)
  - INTENTIONAL MISUSE [None]
  - OVERDOSE [None]
  - SUICIDE ATTEMPT [None]
